FAERS Safety Report 6338862-3 (Version None)
Quarter: 2009Q3

REPORT INFORMATION
  Report Type: 
  Country: None (occurrence: None)
  Receive Date: 20090827
  Receipt Date: 20090720
  Transmission Date: 20100115
  Serious: No
  Sender: FDA-Public Use
  Company Number: 001364

PATIENT
  Sex: Female
  Weight: 38.5 kg

DRUGS (5)
  1. LACOSAMIDE [Suspect]
     Indication: CONVULSION
     Dosage: (100 MG BID ORAL), (150 MG BID ORAL)
     Route: 048
     Dates: start: 20090701, end: 20090701
  2. LACOSAMIDE [Suspect]
     Indication: CONVULSION
     Dosage: (100 MG BID ORAL), (150 MG BID ORAL)
     Route: 048
     Dates: start: 20090701
  3. LEVETIRACETAM [Suspect]
     Indication: CONVULSION
     Dosage: (15 MG BID ORAL)
     Route: 048
     Dates: start: 20070101, end: 20090401
  4. LEVETIRACETAM [Suspect]
     Indication: CONVULSION
     Dosage: (15 ML BID)
     Dates: start: 20090401
  5. FELBATOL [Concomitant]

REACTIONS (1)
  - DRUG INEFFECTIVE [None]
